FAERS Safety Report 9068836 (Version 1)
Quarter: 2013Q1

REPORT INFORMATION
  Report Type: Spontaneous
  Country: TR (occurrence: None)
  Receive Date: 20130122
  Receipt Date: 20130122
  Transmission Date: 20140127
  Serious: Yes (Hospitalization)
  Sender: FDA-Public Use
  Company Number: INT_00175_2013

PATIENT
  Age: 24 Year
  Sex: Male

DRUGS (1)
  1. CEFTRIAXONE (CEFTRIAXONE) [Suspect]
     Indication: LOWER RESPIRATORY TRACT INFECTION
     Dosage: (DF)
     Route: 030

REACTIONS (3)
  - Myocardial infarction [None]
  - Drug hypersensitivity [None]
  - Acute coronary syndrome [None]
